FAERS Safety Report 7403072-5 (Version None)
Quarter: 2011Q2

REPORT INFORMATION
  Report Type: 
  Country: None (occurrence: None)
  Receive Date: 20110408
  Receipt Date: 20110401
  Transmission Date: 20111010
  Serious: Yes (Death, Life-Threatening, Hospitalization, Disabling)
  Sender: FDA-Public Use
  Company Number: ES-SANOFI-AVENTIS-200812944GDDC

PATIENT
  Age: 74 Year
  Sex: Male
  Weight: 69 kg

DRUGS (17)
  1. AFLIBERCEPT [Suspect]
     Dosage: DOSE UNIT: 6 MG/KG
     Route: 042
     Dates: start: 20071207, end: 20071207
  2. ENOXAPARIN [Concomitant]
     Dosage: DOSE AS USED: UNK
     Dates: start: 20080405, end: 20080407
  3. PANTOPRAZOLE [Concomitant]
     Dosage: DOSE AS USED: UNK
     Dates: start: 20080405, end: 20080407
  4. DOCETAXEL [Suspect]
     Dosage: DOSE UNIT: 75 MG/M**2
     Route: 042
     Dates: start: 20071207, end: 20071207
  5. DOCETAXEL [Suspect]
     Dosage: DOSE UNIT: 75 MG/M**2
     Route: 042
     Dates: start: 20080325, end: 20080325
  6. APIRETAL [Concomitant]
     Dosage: DOSE AS USED: UNK
     Dates: start: 20080111, end: 20080219
  7. LIDOCAINE [Concomitant]
     Dosage: DOSE AS USED: UNK
     Dates: start: 20080405, end: 20080407
  8. ZOCOR [Concomitant]
     Dosage: DOSE AS USED: UNK
     Dates: start: 20060501
  9. CHLORTHALIDONE [Concomitant]
     Dosage: DOSE AS USED: UNK
  10. AFLIBERCEPT [Suspect]
     Dosage: DOSE UNIT: 6 MG/KG
     Route: 042
     Dates: start: 20080325, end: 20080325
  11. GRANISETRON HCL [Concomitant]
     Dosage: DOSE AS USED: UNK
     Dates: start: 20071212, end: 20080325
  12. IMIPENEM [Concomitant]
     Dosage: DOSE AS USED: UNK
     Dates: start: 20080401, end: 20080404
  13. PREDNISOLONE [Suspect]
     Route: 048
     Dates: start: 20071212, end: 20080401
  14. CIPROFLOXACIN [Concomitant]
     Dosage: DOSE AS USED: UNK
     Dates: start: 20080405, end: 20080415
  15. AMLODIPINE BESILATE [Concomitant]
     Dosage: DOSE AS USED: UNK
     Dates: start: 20050101
  16. ATENOLOL/CHLORTALIDONE [Concomitant]
     Dosage: DOSE AS USED: UNK
     Dates: start: 20050101
  17. OMEPRAZOLE [Concomitant]
     Dosage: DOSE AS USED: UNK

REACTIONS (2)
  - NEUTROPENIC INFECTION [None]
  - RADICULOPATHY [None]
